FAERS Safety Report 16648195 (Version 4)
Quarter: 2020Q1

REPORT INFORMATION
  Report Type: Spontaneous
  Country: JP (occurrence: JP)
  Receive Date: 20190730
  Receipt Date: 20200101
  Transmission Date: 20200409
  Serious: Yes (Other)
  Sender: FDA-Public Use
  Company Number: JP-ASTRAZENECA-2019SF08102

PATIENT
  Age: 30580 Day
  Sex: Male
  Weight: 38.6 kg

DRUGS (7)
  1. HOCHUEKKITO [Suspect]
     Active Substance: HERBALS
     Indication: DECREASED APPETITE
     Route: 048
     Dates: start: 201906, end: 20190709
  2. TAGRISSO [Suspect]
     Active Substance: OSIMERTINIB
     Indication: NON-SMALL CELL LUNG CANCER
     Route: 048
     Dates: start: 20190723
  3. TAGRISSO [Suspect]
     Active Substance: OSIMERTINIB
     Indication: NON-SMALL CELL LUNG CANCER
     Route: 048
     Dates: start: 20190627, end: 20190709
  4. ELIQUIS [Concomitant]
     Active Substance: APIXABAN
     Dosage: DOSE UNKNOWN
     Route: 065
     Dates: start: 20190709
  5. LIXIANA [Suspect]
     Active Substance: EDOXABAN TOSYLATE
     Indication: ATRIAL FIBRILLATION
     Route: 048
     Dates: start: 201906, end: 20190709
  6. NORVASC [Suspect]
     Active Substance: AMLODIPINE BESYLATE
     Indication: HYPERTENSION
     Route: 048
     Dates: start: 20190614, end: 20190709
  7. MAGMITT [Suspect]
     Active Substance: MAGNESIUM OXIDE
     Indication: CONSTIPATION
     Route: 048
     Dates: start: 20190628, end: 20190709

REACTIONS (3)
  - Renal impairment [Recovered/Resolved]
  - Erythema multiforme [Recovered/Resolved]
  - Viral infection [Recovered/Resolved]

NARRATIVE: CASE EVENT DATE: 20190709
